FAERS Safety Report 24937794 (Version 2)
Quarter: 2025Q1

REPORT INFORMATION
  Report Type: Spontaneous
  Country: US (occurrence: US)
  Receive Date: 20250206
  Receipt Date: 20250226
  Transmission Date: 20250409
  Serious: No
  Sender: SAREPTA THERAPEUTICS
  Company Number: US-SAREPTA THERAPEUTICS INC.-SRP2025-005582

PATIENT
  Age: 7 Year
  Sex: Male
  Weight: 27.9 kg

DRUGS (1)
  1. ELEVIDYS [Suspect]
     Active Substance: DELANDISTROGENE MOXEPARVOVEC-ROKL
     Indication: Duchenne muscular dystrophy
     Route: 042
     Dates: start: 20231009, end: 20231009

REACTIONS (13)
  - Asthenia [Recovered/Resolved]
  - Diarrhoea [Unknown]
  - Conjunctivitis [Unknown]
  - Abnormal behaviour [Unknown]
  - Rash macular [Unknown]
  - Cough [Unknown]
  - Upper respiratory tract infection [Unknown]
  - Adrenocortical insufficiency acute [Unknown]
  - Blood glucose increased [Unknown]
  - Blood urea nitrogen/creatinine ratio increased [Unknown]
  - Immune-mediated myositis [Recovered/Resolved]
  - Alanine aminotransferase increased [Unknown]
  - Aspartate aminotransferase increased [Unknown]

NARRATIVE: CASE EVENT DATE: 20250101
